FAERS Safety Report 26081976 (Version 1)
Quarter: 2025Q4

REPORT INFORMATION
  Report Type: Spontaneous
  Country: EU (occurrence: EU)
  Receive Date: 20251124
  Receipt Date: 20251124
  Transmission Date: 20260117
  Serious: Yes (Other)
  Sender: BAUSCH AND LOMB
  Company Number: EU-BRISTOL-MYERSSQUIBBCOMPANY-2025-154252

PATIENT
  Age: 69 Year
  Sex: Male

DRUGS (20)
  1. DEXAMETHASONE SODIUM PHOSPHATE [Suspect]
     Active Substance: DEXAMETHASONE SODIUM PHOSPHATE
     Indication: Plasma cell myeloma
  2. THALIDOMIDE [Suspect]
     Active Substance: THALIDOMIDE
     Indication: Plasma cell myeloma
  3. POMALIDOMIDE [Suspect]
     Active Substance: POMALIDOMIDE
     Indication: Plasma cell myeloma
  4. CARFILZOMIB [Suspect]
     Active Substance: CARFILZOMIB
     Indication: Plasma cell myeloma
  5. DARATUMUMAB [Suspect]
     Active Substance: DARATUMUMAB
     Indication: Plasma cell myeloma
  6. TALQUETAMAB [Suspect]
     Active Substance: TALQUETAMAB
     Indication: Plasma cell myeloma
  7. CILTACABTAGENE AUTOLEUCEL [Suspect]
     Active Substance: CILTACABTAGENE AUTOLEUCEL
     Indication: Plasma cell myeloma
     Dates: start: 202501
  8. TECLISTAMAB [Suspect]
     Active Substance: TECLISTAMAB
     Indication: Plasma cell myeloma
     Dates: start: 202506
  9. APIXABAN [Concomitant]
     Active Substance: APIXABAN
     Indication: Product used for unknown indication
  10. ALLOPURINOL [Concomitant]
     Active Substance: ALLOPURINOL
     Indication: Product used for unknown indication
  11. ACYCLOVIR [Concomitant]
     Active Substance: ACYCLOVIR
     Indication: Product used for unknown indication
  12. LEVOTHYROXINE [Concomitant]
     Active Substance: LEVOTHYROXINE
     Indication: Product used for unknown indication
  13. GUARAPROLOSE [Concomitant]
     Indication: Product used for unknown indication
  14. PROPYLENE GLYCOL [Concomitant]
     Active Substance: PROPYLENE GLYCOL
     Indication: Product used for unknown indication
  15. HYALURONATE SODIUM [Concomitant]
     Active Substance: HYALURONATE SODIUM
     Indication: Product used for unknown indication
  16. CISPLATIN [Concomitant]
     Active Substance: CISPLATIN
     Indication: Plasma cell myeloma
  17. DOXORUBICIN [Concomitant]
     Active Substance: DOXORUBICIN
     Indication: Plasma cell myeloma
  18. CYCLOPHOSPHAMIDE [Concomitant]
     Active Substance: CYCLOPHOSPHAMIDE
     Indication: Plasma cell myeloma
  19. ETOPOSIDE [Concomitant]
     Active Substance: ETOPOSIDE
     Indication: Plasma cell myeloma
  20. ETOPOSIDE [Concomitant]
     Active Substance: ETOPOSIDE
     Indication: Plasma cell myeloma

REACTIONS (2)
  - Plasma cell myeloma recurrent [Unknown]
  - Plasmacytoma [Unknown]

NARRATIVE: CASE EVENT DATE: 20250601
